FAERS Safety Report 6033885-6 (Version None)
Quarter: 2009Q1

REPORT INFORMATION
  Report Type: 
  Country: None (occurrence: None)
  Receive Date: 20090108
  Receipt Date: 20090108
  Transmission Date: 20090719
  Serious: Yes (Death, Life-Threatening, Hospitalization, Other)
  Sender: FDA-Public Use
  Company Number: None

PATIENT
  Age: 68 Year
  Sex: Female
  Weight: 55.7924 kg

DRUGS (1)
  1. ZOSYN [Suspect]
     Indication: GASTROENTERITIS VIRAL
     Dosage: 2.25 EVERY SIX HOURS IV
     Route: 042
     Dates: start: 20080623, end: 20080624

REACTIONS (10)
  - CATHETER RELATED INFECTION [None]
  - CLOSTRIDIUM DIFFICILE COLITIS [None]
  - CONTRAINDICATION TO MEDICAL TREATMENT [None]
  - MEDICATION ERROR [None]
  - MENINGIOMA [None]
  - MULTI-ORGAN FAILURE [None]
  - MYOCARDIAL INFARCTION [None]
  - SEPSIS [None]
  - SEPTIC SHOCK [None]
  - URINARY TRACT INFECTION [None]
